FAERS Safety Report 14472539 (Version 1)
Quarter: 2018Q1

REPORT INFORMATION
  Report Type: Spontaneous
  Country: DE (occurrence: DE)
  Receive Date: 20180201
  Receipt Date: 20180201
  Transmission Date: 20180509
  Serious: Yes (Hospitalization)
  Sender: FDA-Public Use
  Company Number: PHHY2018DE013815

PATIENT
  Age: 61 Year
  Sex: Female

DRUGS (1)
  1. METOHEXAL SUCC [Suspect]
     Active Substance: METOPROLOL SUCCINATE
     Indication: HYPERTENSION
     Dosage: 95 MG, BID (FOR 20 YEARS)
     Route: 065

REACTIONS (2)
  - Vascular stent occlusion [Unknown]
  - Blood glucose decreased [Unknown]
